FAERS Safety Report 10477696 (Version 1)
Quarter: 2014Q3

REPORT INFORMATION
  Report Type: Spontaneous
  Country: US (occurrence: None)
  Receive Date: 20140925
  Receipt Date: 20140925
  Transmission Date: 20150326
  Serious: Yes (Other)
  Sender: FDA-Public Use
  Company Number: None

PATIENT
  Age: 56 Year
  Sex: Female
  Weight: 90.72 kg

DRUGS (2)
  1. MACROBID [Suspect]
     Active Substance: NITROFURANTOIN\NITROFURANTOIN MONOHYDRATE
     Indication: PROPHYLAXIS URINARY TRACT INFECTION
     Route: 048
     Dates: start: 20131227
  2. MACROBID [Suspect]
     Active Substance: NITROFURANTOIN\NITROFURANTOIN MONOHYDRATE
     Route: 048
     Dates: start: 20131227

REACTIONS (2)
  - Arthralgia [None]
  - Gait disturbance [None]

NARRATIVE: CASE EVENT DATE: 20131227
